FAERS Safety Report 10460538 (Version 1)
Quarter: 2014Q3

REPORT INFORMATION
  Report Type: Report from Study
  Country: TH (occurrence: TH)
  Receive Date: 20140918
  Receipt Date: 20140918
  Transmission Date: 20150326
  Serious: Yes (Life-Threatening, Hospitalization)
  Sender: FDA-Public Use
  Company Number: TH-AUROBINDO-AUR-APL-2014-09894

PATIENT
  Age: 47 Year
  Sex: Female

DRUGS (3)
  1. LAMIVUDINE. [Suspect]
     Active Substance: LAMIVUDINE
     Indication: HIV INFECTION
     Dosage: 300 MG, ONCE A DAY
     Route: 065
  2. ERGOTAMINE [Interacting]
     Active Substance: CAFFEINE\ERGOTAMINE\ERGOTAMINE TARTRATE
     Indication: MIGRAINE
     Dosage: UNK
     Route: 065
  3. TENOFOVIR [Interacting]
     Active Substance: TENOFOVIR
     Indication: HIV INFECTION
     Dosage: 300 MG, ONCE A DAY
     Route: 065

REACTIONS (8)
  - Ergot poisoning [Recovered/Resolved]
  - Cyanosis [Recovered/Resolved]
  - Arterial spasm [Recovered/Resolved]
  - Headache [Recovered/Resolved]
  - Necrosis [Recovered/Resolved]
  - Pain in extremity [Recovered/Resolved]
  - Drug interaction [Recovered/Resolved]
  - Hypoaesthesia [Recovered/Resolved]
